FAERS Safety Report 22534445 (Version 1)
Quarter: 2023Q2

REPORT INFORMATION
  Report Type: Spontaneous
  Country: CN (occurrence: CN)
  Receive Date: 20230608
  Receipt Date: 20230608
  Transmission Date: 20230721
  Serious: Yes (Other)
  Sender: FDA-Public Use
  Company Number: None

PATIENT
  Age: 48 Year
  Sex: Female

DRUGS (7)
  1. CYCLOPHOSPHAMIDE [Suspect]
     Active Substance: CYCLOPHOSPHAMIDE
     Indication: Breast cancer female
     Dosage: 850 MG, QD, DILUTED WITH 45ML OF NS, FIRST CHEMOTHERAPY
     Route: 042
     Dates: start: 20230202, end: 20230202
  2. CYCLOPHOSPHAMIDE [Suspect]
     Active Substance: CYCLOPHOSPHAMIDE
     Indication: Chemotherapy
  3. SODIUM CHLORIDE [Suspect]
     Active Substance: SODIUM CHLORIDE
     Indication: Medication dilution
     Dosage: 45 ML, QD, USED TO DILUTE 850 MG OF CYCLOPHOSPHAMIDE, FIRST CHEMOTHERAPY
     Route: 042
     Dates: start: 20230202, end: 20230202
  4. SODIUM CHLORIDE [Suspect]
     Active Substance: SODIUM CHLORIDE
     Dosage: 100 ML, QD, USED TO DILUTE 120 MG OF EPIRUBICIN HYDROCHLORIDE, FIRST CHEMOTHERAPY
     Route: 041
     Dates: start: 20230202, end: 20230202
  5. EPIRUBICIN HYDROCHLORIDE [Suspect]
     Active Substance: EPIRUBICIN HYDROCHLORIDE
     Indication: Breast cancer female
     Dosage: 120 MG, QD, DILUTED WITH 100 ML OF NS, FIRST CHEMOTHERAPY
     Route: 041
     Dates: start: 20230202, end: 20230202
  6. EPIRUBICIN HYDROCHLORIDE [Suspect]
     Active Substance: EPIRUBICIN HYDROCHLORIDE
     Indication: Chemotherapy
  7. AI DUO [Concomitant]
     Dosage: 6 MG, START DATE: FEB2023
     Route: 058

REACTIONS (2)
  - White blood cell count decreased [Recovered/Resolved]
  - Agranulocytosis [Recovered/Resolved]

NARRATIVE: CASE EVENT DATE: 20230209
